FAERS Safety Report 18913740 (Version 1)
Quarter: 2021Q1

REPORT INFORMATION
  Report Type: Spontaneous
  Country: GB (occurrence: GB)
  Receive Date: 20210218
  Receipt Date: 20210218
  Transmission Date: 20210420
  Serious: Yes (Death)
  Sender: FDA-Public Use
  Company Number: GB-TEVA-2021-GB-1882406

PATIENT
  Age: 74 Year
  Sex: Female
  Weight: 39.01 kg

DRUGS (4)
  1. PREDNISOLONE. [Suspect]
     Active Substance: PREDNISOLONE
     Indication: INFLUENZA
     Dosage: 30 MILLIGRAM DAILY;
     Route: 048
     Dates: start: 20101208, end: 20101212
  2. FLUPHENAZINE DECANOATE. [Suspect]
     Active Substance: FLUPHENAZINE DECANOATE
     Indication: SCHIZOPHRENIA
     Route: 051
     Dates: start: 19640101, end: 20101208
  3. PREDNISOLONE. [Suspect]
     Active Substance: PREDNISOLONE
     Indication: ILL-DEFINED DISORDER
  4. FLUPHENAZINE DECANOATE. [Suspect]
     Active Substance: FLUPHENAZINE DECANOATE
     Indication: ILL-DEFINED DISORDER

REACTIONS (2)
  - Adverse drug reaction [Fatal]
  - Medication error [Unknown]

NARRATIVE: CASE EVENT DATE: 20101212
